FAERS Safety Report 5024600-3 (Version None)
Quarter: 2006Q2

REPORT INFORMATION
  Report Type: 
  Country: None (occurrence: None)
  Receive Date: 20060613
  Receipt Date: 20060601
  Transmission Date: 20061013
  Serious: Yes (Death, Hospitalization)
  Sender: FDA-Public Use
  Company Number: US-AMGEN-US181578

PATIENT
  Sex: Male

DRUGS (3)
  1. NEULASTA [Suspect]
     Indication: CHEMOTHERAPY
  2. TAXOTERE [Concomitant]
  3. CARBOPLATIN [Concomitant]

REACTIONS (4)
  - BONE PAIN [None]
  - DEATH [None]
  - DEHYDRATION [None]
  - NAUSEA [None]
